FAERS Safety Report 15822441 (Version 5)
Quarter: 2019Q1

REPORT INFORMATION
  Report Type: Report from Study
  Country: CO (occurrence: CO)
  Receive Date: 20190114
  Receipt Date: 20190327
  Transmission Date: 20190417
  Serious: Yes (Hospitalization)
  Sender: FDA-Public Use
  Company Number: CO-INCYTE CORPORATION-2018IN013472

PATIENT

DRUGS (2)
  1. JAKAVI [Suspect]
     Active Substance: RUXOLITINIB
     Indication: MYELOFIBROSIS
     Dosage: 20 MG, QD
     Route: 048
  2. JAKAVI [Suspect]
     Active Substance: RUXOLITINIB
     Dosage: 10 MG, QD
     Route: 048

REACTIONS (13)
  - Splenitis [Unknown]
  - Abdominal pain upper [Unknown]
  - Hepatitis [Unknown]
  - Inappropriate schedule of product administration [Unknown]
  - Pleural effusion [Unknown]
  - Nephritis [Unknown]
  - Prostatitis [Unknown]
  - Ill-defined disorder [Unknown]
  - Fluid retention [Unknown]
  - Dyspnoea [Unknown]
  - Peripheral swelling [Unknown]
  - Cardiomegaly [Unknown]
  - Malaise [Unknown]

NARRATIVE: CASE EVENT DATE: 201811
